FAERS Safety Report 5758939-0 (Version None)
Quarter: 2008Q2

REPORT INFORMATION
  Report Type: 
  Country: None (occurrence: None)
  Receive Date: 20080604
  Receipt Date: 20080521
  Transmission Date: 20081010
  Serious: Yes (Hospitalization)
  Sender: FDA-Public Use
  Company Number: JP-GENENTECH-261743

PATIENT
  Sex: Female

DRUGS (4)
  1. BEVACIZUMAB [Suspect]
     Indication: COLON CANCER METASTATIC
     Dosage: 5 MG/KG, QD
     Route: 041
     Dates: start: 20071023, end: 20071121
  2. OXALIPLATIN [Suspect]
     Indication: COLON CANCER METASTATIC
     Dosage: 68 MG/M2, QD
     Route: 041
     Dates: start: 20071023, end: 20071121
  3. FLUOROURACIL [Suspect]
     Indication: COLON CANCER METASTATIC
     Dosage: 320 MG/M2, QD
     Dates: start: 20071023, end: 20071122
  4. ISOVORIN [Suspect]
     Indication: COLON CANCER METASTATIC
     Dosage: 80 MG/M2, QD
     Route: 041
     Dates: start: 20071023, end: 20071122

REACTIONS (1)
  - BIPOLAR I DISORDER [None]
